FAERS Safety Report 13913532 (Version 1)
Quarter: 2017Q3

REPORT INFORMATION
  Report Type: Spontaneous
  Country: US (occurrence: US)
  Receive Date: 20170828
  Receipt Date: 20170828
  Transmission Date: 20171127
  Serious: No
  Sender: FDA-Public Use
  Company Number: US-ROCHE-1137425

PATIENT
  Sex: Female
  Weight: 67.87 kg

DRUGS (1)
  1. NUTROPIN [Suspect]
     Active Substance: SOMATROPIN
     Indication: DWARFISM
     Route: 065

REACTIONS (4)
  - Incorrect dose administered [Unknown]
  - Fibromyalgia [Unknown]
  - Therapeutic product ineffective [Unknown]
  - Osteoarthritis [Unknown]
